FAERS Safety Report 25118236 (Version 1)
Quarter: 2025Q1

REPORT INFORMATION
  Report Type: Spontaneous
  Country: IN (occurrence: IN)
  Receive Date: 20250325
  Receipt Date: 20250325
  Transmission Date: 20250409
  Serious: Yes (Other)
  Sender: RISING PHARMACEUTICALS
  Company Number: IN-RISINGPHARMA-IN-2025RISLIT00136

PATIENT
  Age: 3 Year
  Sex: Female

DRUGS (2)
  1. TOPOTECAN HYDROCHLORIDE [Suspect]
     Active Substance: TOPOTECAN HYDROCHLORIDE
     Indication: Product use in unapproved indication
     Route: 035
  2. TOPOTECAN HYDROCHLORIDE [Suspect]
     Active Substance: TOPOTECAN HYDROCHLORIDE
     Route: 035

REACTIONS (2)
  - Subconjunctival fibrosis [None]
  - Product use in unapproved indication [Unknown]
